FAERS Safety Report 15433992 (Version 2)
Quarter: 2019Q1

REPORT INFORMATION
  Report Type: Report from Study
  Country: US (occurrence: US)
  Receive Date: 20180927
  Receipt Date: 20190213
  Transmission Date: 20190417
  Serious: No
  Sender: FDA-Public Use
  Company Number: US-SA-2018SA268079

PATIENT
  Age: 47 Year
  Sex: Male

DRUGS (2)
  1. ALGLUCOSIDASE ALFA [Suspect]
     Active Substance: ALGLUCOSIDASE ALFA
     Dosage: 2800 (UNITS NOT PROVIDED); FREQUENCY:Q2
     Route: 041
     Dates: start: 20190207
  2. ALGLUCOSIDASE ALFA [Suspect]
     Active Substance: ALGLUCOSIDASE ALFA
     Indication: GLYCOGEN STORAGE DISEASE TYPE II
     Dosage: 28 DF, QOW
     Route: 041
     Dates: start: 20110630

REACTIONS (5)
  - Ill-defined disorder [Unknown]
  - Sleep disorder [Not Recovered/Not Resolved]
  - Depression [Not Recovered/Not Resolved]
  - Product dose omission [Unknown]
  - Sensory disturbance [Not Recovered/Not Resolved]

NARRATIVE: CASE EVENT DATE: 201808
